FAERS Safety Report 21666463 (Version 2)
Quarter: 2022Q4

REPORT INFORMATION
  Report Type: Spontaneous
  Country: JP (occurrence: JP)
  Receive Date: 20221201
  Receipt Date: 20221223
  Transmission Date: 20230113
  Serious: Yes (Life-Threatening, Hospitalization, Other)
  Sender: FDA-Public Use
  Company Number: JP-TAKEDA-2018TJP026707

PATIENT
  Age: 90 Year
  Sex: Female
  Weight: 43 kg

DRUGS (9)
  1. LANSOPRAZOLE [Suspect]
     Active Substance: LANSOPRAZOLE
     Indication: Gastrooesophageal reflux disease
     Dosage: 15 MILLIGRAM DAILY;
     Route: 048
     Dates: start: 20170704, end: 20171025
  2. LANSOPRAZOLE [Suspect]
     Active Substance: LANSOPRAZOLE
     Indication: Gastric ulcer
     Dosage: ???????
     Route: 048
  3. NU-LOTAN [Concomitant]
     Active Substance: LOSARTAN POTASSIUM
     Indication: Hypertension
     Dosage: 25 MILLIGRAM DAILY;
     Route: 048
  4. AMLODIPINE BESYLATE [Concomitant]
     Active Substance: AMLODIPINE BESYLATE
     Indication: Hypertension
     Dosage: 2.5 MILLIGRAM DAILY;
     Route: 048
  5. AZOSEMIDE [Concomitant]
     Active Substance: AZOSEMIDE
     Indication: Cardiac failure chronic
     Dosage: 30 MILLIGRAM DAILY;
     Route: 048
  6. AZOSEMIDE [Concomitant]
     Active Substance: AZOSEMIDE
     Indication: Hypertension
     Route: 048
  7. VITAMINS NOS [Concomitant]
     Active Substance: VITAMINS
     Indication: Lumbar spinal stenosis
     Dosage: 15 MICROGRAM DAILY;
     Route: 048
  8. METHYLCOBALAMIN [Concomitant]
     Active Substance: METHYLCOBALAMIN
     Indication: Lumbar spinal stenosis
     Dosage: 1500 MICROGRAM DAILY;
     Route: 048
  9. SENNA LEAF [Concomitant]
     Active Substance: SENNA LEAF
     Indication: Constipation
     Dosage: 80 MILLIGRAM DAILY;
     Route: 048

REACTIONS (9)
  - Large intestine perforation [Recovered/Resolved]
  - Peritonitis [Recovered/Resolved]
  - Abdominal pain lower [Recovered/Resolved]
  - Ascites [Recovered/Resolved]
  - Abdominal infection [Recovered/Resolved]
  - Abdominal tenderness [Recovered/Resolved]
  - Pyrexia [Recovered/Resolved]
  - Flatulence [Recovered/Resolved]
  - Colitis microscopic [Recovered/Resolved]

NARRATIVE: CASE EVENT DATE: 20171026
